FAERS Safety Report 10901756 (Version 1)
Quarter: 2015Q1

REPORT INFORMATION
  Report Type: Spontaneous
  Country: TR (occurrence: TR)
  Receive Date: 20150310
  Receipt Date: 20150310
  Transmission Date: 20150721
  Serious: Yes (Other)
  Sender: FDA-Public Use
  Company Number: TR-ABBVIE-15P-161-1357779-00

PATIENT
  Age: 34 Year
  Sex: Male

DRUGS (1)
  1. TESTOGEL [Suspect]
     Active Substance: TESTOSTERONE
     Indication: HYPOGONADISM
     Route: 065

REACTIONS (3)
  - Dizziness [Unknown]
  - Tinnitus [Unknown]
  - Treatment noncompliance [Unknown]
